FAERS Safety Report 5318440-5 (Version None)
Quarter: 2007Q2

REPORT INFORMATION
  Report Type: 
  Country: None (occurrence: None)
  Receive Date: 20070430
  Receipt Date: 20070420
  Transmission Date: 20071010
  Serious: Yes (Hospitalization)
  Sender: FDA-Public Use
  Company Number: GXKR2007GB03691

PATIENT
  Age: 87 Year
  Sex: Male

DRUGS (3)
  1. CODEINE PHOSPHATE AND ACETAMINOPHEN [Suspect]
     Indication: PAIN
     Dosage: 1 DF, QID
     Dates: end: 20070331
  2. ALFUZOSIN [Concomitant]
  3. FRUSEMIDE [Concomitant]

REACTIONS (1)
  - FAECALOMA [None]
